FAERS Safety Report 7331106-5 (Version None)
Quarter: 2011Q1

REPORT INFORMATION
  Report Type: 
  Country: None (occurrence: None)
  Receive Date: 20110224
  Receipt Date: 20110209
  Transmission Date: 20110831
  Serious: Yes (Other)
  Sender: FDA-Public Use
  Company Number: 023126

PATIENT
  Sex: Male

DRUGS (10)
  1. KEPPRA [Suspect]
     Indication: EPILEPSY
     Dosage: (500 MG BID ORAL), (1000 MG BID ORAL), (1500 MG BID ORAL)
     Route: 048
     Dates: start: 20101117, end: 20101124
  2. KEPPRA [Suspect]
     Indication: EPILEPSY
     Dosage: (500 MG BID ORAL), (1000 MG BID ORAL), (1500 MG BID ORAL)
     Route: 048
     Dates: start: 20101125, end: 20101129
  3. KEPPRA [Suspect]
     Indication: EPILEPSY
     Dosage: (500 MG BID ORAL), (1000 MG BID ORAL), (1500 MG BID ORAL)
     Route: 048
     Dates: start: 20101019, end: 20101116
  4. ZYPREXA [Concomitant]
  5. BIFIDOBACTERIUM BIFIDUM [Concomitant]
  6. SILECE [Concomitant]
  7. NITRAZEPAM [Concomitant]
  8. GASTER /00706001/ [Concomitant]
  9. RIVOTRIL (RIVOTRIL) [Suspect]
     Indication: MYOCLONIC EPILEPSY
     Dosage: (60 MG ORAL)
     Route: 048
     Dates: start: 20100712
  10. SELENICA-R [Concomitant]

REACTIONS (2)
  - LIVER FUNCTION TEST ABNORMAL [None]
  - RED BLOOD CELL COUNT DECREASED [None]
